FAERS Safety Report 4511901-8 (Version None)
Quarter: 2004Q4

REPORT INFORMATION
  Report Type: 
  Country: None (occurrence: None)
  Receive Date: 20041123
  Receipt Date: 20041112
  Transmission Date: 20050328
  Serious: Yes (Congenital Anomaly)
  Sender: FDA-Public Use
  Company Number: S04-USA-00905-02

PATIENT
  Age: 0 Decade
  Sex: Male
  Weight: 2.67 kg

DRUGS (12)
  1. CELEXA [Suspect]
     Indication: DEPRESSION
     Dosage: SEE IMAGE
     Route: 064
     Dates: start: 20040517, end: 20040101
  2. CELEXA [Suspect]
     Indication: DEPRESSION
     Dosage: SEE IMAGE
     Route: 064
     Dates: end: 20040517
  3. CELEXA [Suspect]
     Indication: DEPRESSION
     Dosage: SEE IMAGE
     Route: 064
     Dates: start: 20040101
  4. WELLBUTRIN [Concomitant]
  5. TEMAZEPAM [Concomitant]
  6. TYLENOL [Concomitant]
  7. ORTHO TRI-CYCLEN [Concomitant]
  8. PRENATAL VITAMINS [Concomitant]
  9. CALCIUM [Concomitant]
  10. FIBER [Concomitant]
  11. PHENERGAN [Concomitant]
  12. SPINAL ANESTHESIA (NOS) [Concomitant]

REACTIONS (9)
  - AMNIOTIC FLUID VOLUME DECREASED [None]
  - BREECH PRESENTATION [None]
  - CAESAREAN SECTION [None]
  - DRUG EXPOSURE DURING PREGNANCY [None]
  - FOETAL GROWTH RETARDATION [None]
  - HIP DYSPLASIA [None]
  - JAUNDICE NEONATAL [None]
  - NEONATAL DISORDER [None]
  - SMALL FOR DATES BABY [None]
